FAERS Safety Report 8476126-2 (Version None)
Quarter: 2012Q2

REPORT INFORMATION
  Report Type: 
  Country: None (occurrence: None)
  Receive Date: 20120628
  Receipt Date: 20120615
  Transmission Date: 20120825
  Serious: No
  Sender: FDA-Public Use
  Company Number: US-ASTRAZENECA-2012SE40510

PATIENT
  Sex: Female

DRUGS (2)
  1. NEXIUM [Suspect]
     Indication: OESOPHAGEAL ULCER
     Dosage: AT NIGHT AND AS NEEDED
     Route: 048
  2. NEXIUM [Suspect]
     Indication: OESOPHAGEAL DISORDER
     Dosage: AT NIGHT AND AS NEEDED
     Route: 048

REACTIONS (3)
  - DYSPEPSIA [None]
  - ERUCTATION [None]
  - OFF LABEL USE [None]
